FAERS Safety Report 4284597-0 (Version None)
Quarter: 2004Q1

REPORT INFORMATION
  Report Type: 
  Country: None (occurrence: None)
  Receive Date: 20040130
  Receipt Date: 20040115
  Transmission Date: 20041129
  Serious: Yes (Death, Hospitalization)
  Sender: FDA-Public Use
  Company Number: EWC040137594

PATIENT
  Age: 57 Year
  Sex: Male
  Weight: 64 kg

DRUGS (14)
  1. GEMCITABINE HYDROCHLORIDE-IV (GEMCITABINE) [Suspect]
     Indication: NON-SMALL CELL LUNG CANCER
     Dosage: 1400 MG/M2/3 OTHER
     Dates: start: 20030517, end: 20031025
  2. CISPLATIN [Concomitant]
  3. BISOLVON (BROMHEXINE HYDROCHLORIDE) [Concomitant]
  4. EMETROL [Concomitant]
  5. TRAMADOL HCL [Concomitant]
  6. STILNOX (ZOLPIDEM) [Concomitant]
  7. LEXOTAN (BROMAZEPAM) [Concomitant]
  8. GELUSIL-I [Concomitant]
  9. FLEMGO (CARBOCISTEINE) [Concomitant]
  10. MORPHINE [Concomitant]
  11. VALIUM [Concomitant]
  12. ACETAMINOPHEN [Concomitant]
  13. MEDICON A [Concomitant]
  14. SENNOSIDE A [Concomitant]

REACTIONS (7)
  - C-REACTIVE PROTEIN INCREASED [None]
  - DEPRESSED LEVEL OF CONSCIOUSNESS [None]
  - PNEUMONIA [None]
  - RESPIRATORY FAILURE [None]
  - SEPSIS [None]
  - SPUTUM CULTURE POSITIVE [None]
  - WHITE BLOOD CELL COUNT INCREASED [None]
